FAERS Safety Report 15832676 (Version 4)
Quarter: 2019Q1

REPORT INFORMATION
  Report Type: Report from Study
  Country: US (occurrence: US)
  Receive Date: 20190116
  Receipt Date: 20190222
  Transmission Date: 20190417
  Serious: Yes (Hospitalization, Other)
  Sender: FDA-Public Use
  Company Number: US-ACTELION-A-NJ2017-160599

PATIENT
  Age: 80 Year
  Sex: Female
  Weight: 43.84 kg

DRUGS (3)
  1. OPSUMIT [Suspect]
     Active Substance: MACITENTAN
     Indication: PULMONARY ARTERIAL HYPERTENSION
     Dosage: 10 MG, QD
     Route: 048
     Dates: start: 20140515
  2. COUMADIN [Concomitant]
     Active Substance: WARFARIN SODIUM
  3. GABAPENTIN. [Suspect]
     Active Substance: GABAPENTIN
     Indication: PRODUCT USED FOR UNKNOWN INDICATION
     Route: 065

REACTIONS (24)
  - Starvation [Unknown]
  - Somnolence [Unknown]
  - Sedation [Unknown]
  - Therapy non-responder [Unknown]
  - Oesophageal disorder [Unknown]
  - Cardiac failure congestive [Unknown]
  - Neck mass [Unknown]
  - Neck pain [Unknown]
  - Oxygen therapy [Unknown]
  - Rhinorrhoea [Not Recovered/Not Resolved]
  - Anticoagulation drug level increased [Unknown]
  - Oesophageal dilation procedure [Unknown]
  - Scleroderma [Unknown]
  - Herpes zoster [Unknown]
  - Muscle spasms [Unknown]
  - Decreased appetite [Unknown]
  - Asthenia [Unknown]
  - Throat tightness [Unknown]
  - Back pain [Unknown]
  - Gait disturbance [Unknown]
  - Lung disorder [Not Recovered/Not Resolved]
  - Unevaluable event [Not Recovered/Not Resolved]
  - Throat irritation [Unknown]
  - Dysphagia [Unknown]

NARRATIVE: CASE EVENT DATE: 20190110
